FAERS Safety Report 9642934 (Version 3)
Quarter: 2015Q1

REPORT INFORMATION
  Report Type: Report from Study
  Country: DE (occurrence: DE)
  Receive Date: 20131024
  Receipt Date: 20150108
  Transmission Date: 20150721
  Serious: Yes (Hospitalization, Other)
  Sender: FDA-Public Use
  Company Number: DE-UCBSA-100885

PATIENT
  Sex: Male
  Weight: 92 kg

DRUGS (10)
  1. TILIDINE [Concomitant]
     Active Substance: TILIDINE
  2. OMEPRAZOLE. [Concomitant]
     Active Substance: OMEPRAZOLE
  3. SPIRONOLACTONE. [Concomitant]
     Active Substance: SPIRONOLACTONE
     Dosage: DOSE: 50 MG, 0.5-0-0
  4. TORASEMIDE [Concomitant]
     Active Substance: TORSEMIDE
     Dosage: DOSE: 10 MG 10-10-0
  5. ?-ACETYLDIGOXIN [Concomitant]
     Dosage: DOSE: 0.2 MG 0.2-0-0
  6. ALLOPURINOL. [Concomitant]
     Active Substance: ALLOPURINOL
     Dosage: DOSE: 0-300-0
  7. MARCUMAR [Concomitant]
     Active Substance: PHENPROCOUMON
  8. METOPROLOL SUCCINATE. [Concomitant]
     Active Substance: METOPROLOL SUCCINATE
     Dosage: DOSE: 95-0-0
  9. CLEXANE [Concomitant]
     Active Substance: ENOXAPARIN SODIUM
     Dosage: DOSE: 80 1-0-1
  10. CERTOLIZUMAB PEGOL RA [Suspect]
     Active Substance: CERTOLIZUMAB PEGOL
     Indication: RHEUMATOID ARTHRITIS
     Dosage: 200 MG, UNK
     Route: 058
     Dates: start: 20100604, end: 201207

REACTIONS (2)
  - Peritonitis [Recovering/Resolving]
  - Appendicitis [Recovering/Resolving]

NARRATIVE: CASE EVENT DATE: 201307
